FAERS Safety Report 8864339 (Version 1)
Quarter: 2012Q4

REPORT INFORMATION
  Report Type: 
  Country: US (occurrence: US)
  Receive Date: 20121024
  Receipt Date: 20121024
  Transmission Date: 20130627
  Serious: No
  Sender: FDA-Public Use
  Company Number: US-AMGEN-USASP2011066905

PATIENT
  Sex: Female
  Weight: 90.7 kg

DRUGS (11)
  1. ENBREL [Suspect]
     Indication: PRODUCT USED FOR UNKNOWN INDICATION
     Dosage: 50 mg, qwk
     Route: 058
  2. HUMALOG MIX [Concomitant]
  3. CENTRUM SILVER                     /01292501/ [Concomitant]
     Route: 048
  4. CALTRATE + SOY [Concomitant]
     Route: 048
  5. LIPITOR [Concomitant]
     Dosage: 20 mg, UNK
     Route: 048
  6. OXYBUTYNIN [Concomitant]
     Dosage: 5 mg, UNK
     Route: 048
  7. VITAMIN C                          /00008001/ [Concomitant]
     Dosage: 500 mg, UNK
     Route: 048
  8. TOPROL [Concomitant]
     Dosage: 200 mg, UNK
     Route: 048
  9. BENICAR [Concomitant]
     Dosage: 40 mg, UNK
     Route: 048
  10. CALCIUM [Concomitant]
     Route: 048
  11. CO Q 10 [Concomitant]
     Dosage: 100 mg, UNK
     Route: 048

REACTIONS (1)
  - Injection site pruritus [Unknown]
